FAERS Safety Report 6955539-1 (Version None)
Quarter: 2010Q3

REPORT INFORMATION
  Report Type: 
  Country: None (occurrence: None)
  Receive Date: 20100826
  Receipt Date: 20100826
  Transmission Date: 20110219
  Serious: Yes (Other)
  Sender: FDA-Public Use
  Company Number: None

PATIENT
  Age: 56 Year
  Sex: Female
  Weight: 84.369 kg

DRUGS (3)
  1. METRONIDAZOLE [Suspect]
     Indication: VAGINITIS BACTERIAL
     Dosage: 500 MG 2 TIMES A DAY
     Dates: start: 20100818, end: 20100824
  2. PMS-CETIRIZINE [Concomitant]
  3. CORTIZONE CREAM [Concomitant]

REACTIONS (1)
  - RASH PRURITIC [None]
